FAERS Safety Report 7587557-7 (Version None)
Quarter: 2011Q3

REPORT INFORMATION
  Report Type: 
  Country: None (occurrence: None)
  Receive Date: 20110704
  Receipt Date: 20110620
  Transmission Date: 20111222
  Serious: Yes (Death, Hospitalization)
  Sender: FDA-Public Use
  Company Number: PHHY2011JP34902

PATIENT
  Sex: Female
  Weight: 38 kg

DRUGS (2)
  1. ALISKIREN [Suspect]
     Indication: HYPERTENSION
     Dosage: UNK
     Route: 048
     Dates: start: 20091128, end: 20101004
  2. CONIEL [Concomitant]
     Indication: HYPERTENSION
     Dosage: 4 MG, UNK
     Route: 048
     Dates: start: 20090413, end: 20101004

REACTIONS (4)
  - ACCIDENTAL EXPOSURE [None]
  - PNEUMONIA [None]
  - ASPIRATION [None]
  - RESPIRATORY FAILURE [None]
